FAERS Safety Report 7526673-2 (Version None)
Quarter: 2011Q2

REPORT INFORMATION
  Report Type: 
  Country: None (occurrence: None)
  Receive Date: 20110606
  Receipt Date: 20110531
  Transmission Date: 20111010
  Serious: Yes (Other)
  Sender: FDA-Public Use
  Company Number: DE-PFIZER INC-2011095458

PATIENT
  Age: 53 Year
  Sex: Female

DRUGS (3)
  1. ATORVASTATIN CALCIUM [Suspect]
     Dosage: UNK
     Dates: start: 20110401
  2. LAMICTAL [Concomitant]
     Indication: GRAND MAL CONVULSION
     Dosage: 100 MG, 3X/DAY
  3. KEPPRA [Concomitant]
     Indication: GRAND MAL CONVULSION
     Dosage: 750 MG, 3X/DAY

REACTIONS (1)
  - GRAND MAL CONVULSION [None]
